FAERS Safety Report 8152154-1 (Version None)
Quarter: 2012Q1

REPORT INFORMATION
  Report Type: 
  Country: None (occurrence: None)
  Receive Date: 20120214
  Receipt Date: 20120207
  Transmission Date: 20120608
  Serious: Yes (Other)
  Sender: FDA-Public Use
  Company Number: 1189546

PATIENT
  Sex: Male

DRUGS (3)
  1. MIDAZOLAM [Suspect]
     Indication: CONVULSION
  2. VALPROATE SODIUM [Suspect]
     Indication: PRODUCT USED FOR UNKNOWN INDICATION
     Dosage: 1500 MG, ORAL
     Route: 048
  3. KEPPRA [Suspect]
     Indication: CONVULSION
     Dosage: 1000 ML, ORAL
     Route: 048

REACTIONS (9)
  - VISION BLURRED [None]
  - PARAESTHESIA [None]
  - CONVULSION [None]
  - FEELING ABNORMAL [None]
  - DEPRESSED MOOD [None]
  - EUPHORIC MOOD [None]
  - DISEASE RECURRENCE [None]
  - HYPOAESTHESIA [None]
  - PHOTOSENSITIVITY REACTION [None]
